FAERS Safety Report 18233553 (Version 2)
Quarter: 2021Q2

REPORT INFORMATION
  Report Type: Spontaneous
  Country: US (occurrence: US)
  Receive Date: 20200904
  Receipt Date: 20210514
  Transmission Date: 20210717
  Serious: No
  Sender: FDA-Public Use
  Company Number: US-BIOGEN-2020BI00887661

PATIENT
  Age: 27 Year
  Sex: Female

DRUGS (2)
  1. TECFIDERA [Suspect]
     Active Substance: DIMETHYL FUMARATE
     Route: 048
     Dates: start: 20200612
  2. TECFIDERA [Suspect]
     Active Substance: DIMETHYL FUMARATE
     Indication: MULTIPLE SCLEROSIS
     Route: 048
     Dates: start: 20200611

REACTIONS (5)
  - Hot flush [Not Recovered/Not Resolved]
  - Rash macular [Unknown]
  - Product dose omission issue [Recovered/Resolved]
  - Extra dose administered [Unknown]
  - Haemorrhagic disorder [Not Recovered/Not Resolved]

NARRATIVE: CASE EVENT DATE: 20200611
